FAERS Safety Report 5408070-9 (Version None)
Quarter: 2007Q3

REPORT INFORMATION
  Report Type: 
  Country: None (occurrence: None)
  Receive Date: 20070808
  Receipt Date: 20070730
  Transmission Date: 20080115
  Serious: Yes (Other)
  Sender: FDA-Public Use
  Company Number: PHEH2007US10626

PATIENT
  Sex: Male

DRUGS (5)
  1. DOCUSATE SODIUM [Suspect]
  2. DIOVAN [Suspect]
  3. BISACODYL [Suspect]
  4. CIPROFLOXACIN [Suspect]
  5. ENABLEX [Suspect]

REACTIONS (4)
  - CONSTIPATION [None]
  - POSTOPERATIVE CONSTIPATION [None]
  - PROSTATIC OPERATION [None]
  - SURGERY [None]
